FAERS Safety Report 7246246-9 (Version None)
Quarter: 2011Q1

REPORT INFORMATION
  Report Type: 
  Country: None (occurrence: None)
  Receive Date: 20110126
  Receipt Date: 20110120
  Transmission Date: 20110831
  Serious: Yes (Other)
  Sender: FDA-Public Use
  Company Number: US-PFIZER INC-2011014288

PATIENT
  Sex: Female
  Weight: 63.492 kg

DRUGS (6)
  1. LYRICA [Concomitant]
     Indication: FIBROMYALGIA
  2. CARVEDILOL [Concomitant]
     Indication: HYPERTENSION
  3. OXYCODONE [Concomitant]
     Indication: SCOLIOSIS
  4. ZYVOX [Suspect]
     Indication: INFECTION
     Dosage: 600 MG, 1X/DAY
     Route: 048
     Dates: start: 20110110, end: 20110120
  5. CLONAZEPAM [Concomitant]
     Indication: DEPRESSION
  6. SPIRONOLACTONE [Concomitant]

REACTIONS (5)
  - THINKING ABNORMAL [None]
  - URINARY TRACT INFECTION [None]
  - AGITATION [None]
  - CYSTITIS [None]
  - MEDICATION ERROR [None]
